FAERS Safety Report 19188420 (Version 3)
Quarter: 2021Q2

REPORT INFORMATION
  Report Type: Other
  Country: GB (occurrence: GB)
  Receive Date: 20210428
  Receipt Date: 20210507
  Transmission Date: 20210717
  Serious: Yes (Other)
  Sender: FDA-Public Use
  Company Number: GB-GLENMARK PHARMACEUTICALS-2021GMK053664

PATIENT

DRUGS (3)
  1. BETNOVATE [Suspect]
     Active Substance: BETAMETHASONE
     Indication: PRODUCT USED FOR UNKNOWN INDICATION
     Dosage: UNK
     Route: 065
  2. EUMOVATE [Suspect]
     Active Substance: CLOBETASONE BUTYRATE
     Indication: PRODUCT USED FOR UNKNOWN INDICATION
     Dosage: UNK
     Route: 065
  3. MOMETASONE FUROATE. [Suspect]
     Active Substance: MOMETASONE FUROATE
     Indication: ECZEMA
     Dosage: UNK UNK, PRN (USE WHEN SKIN FLARED)
     Route: 061
     Dates: start: 2010, end: 2021

REACTIONS (19)
  - Skin burning sensation [Not Recovered/Not Resolved]
  - Skin wrinkling [Not Recovered/Not Resolved]
  - Fatigue [Not Recovered/Not Resolved]
  - Scab [Not Recovered/Not Resolved]
  - Asthenia [Not Recovered/Not Resolved]
  - Feeling of body temperature change [Not Recovered/Not Resolved]
  - Skin hyperpigmentation [Not Recovered/Not Resolved]
  - Skin weeping [Not Recovered/Not Resolved]
  - Insomnia [Not Recovered/Not Resolved]
  - Decreased appetite [Not Recovered/Not Resolved]
  - Skin exfoliation [Not Recovered/Not Resolved]
  - Elephantiasis [Not Recovered/Not Resolved]
  - Erythema [Not Recovered/Not Resolved]
  - Rebound eczema [Not Recovered/Not Resolved]
  - Lichenification [Not Recovered/Not Resolved]
  - Wound secretion [Not Recovered/Not Resolved]
  - Blister [Not Recovered/Not Resolved]
  - Lethargy [Not Recovered/Not Resolved]
  - Pruritus [Not Recovered/Not Resolved]
